FAERS Safety Report 7323437-X (Version None)
Quarter: 2011Q1

REPORT INFORMATION
  Report Type: 
  Country: None (occurrence: None)
  Receive Date: 20110301
  Receipt Date: 20110223
  Transmission Date: 20110831
  Serious: Yes (Other)
  Sender: FDA-Public Use
  Company Number: PL-GENZYME-THYM-1002322

PATIENT
  Age: 7 Year

DRUGS (13)
  1. IMMUNOGLOBULINS [Concomitant]
     Indication: PRODUCT USED FOR UNKNOWN INDICATION
  2. MYCOPHENOLATE [Concomitant]
     Indication: IMMUNOSUPPRESSION
  3. ANTIFUNGALS [Concomitant]
     Indication: FUNGAL INFECTION
  4. ETANERCEPT [Concomitant]
     Indication: IMMUNOSUPPRESSION
  5. THYMOGLOBULIN [Suspect]
     Indication: BONE MARROW CONDITIONING REGIMEN
     Route: 042
  6. CYCLOPHOSPHAMIDE [Concomitant]
     Indication: BONE MARROW CONDITIONING REGIMEN
  7. ANTIVIRALS NOS [Concomitant]
     Indication: VIRAL INFECTION
  8. ANTIBACTERIALS FOR SYSTEMIC USE [Concomitant]
     Indication: BACTERIAL INFECTION
  9. PREDNISOLONE [Concomitant]
     Indication: IMMUNOSUPPRESSION
  10. CYCLOSPORINE [Concomitant]
     Indication: PROPHYLAXIS AGAINST GRAFT VERSUS HOST DISEASE
  11. TACROLIMUS [Concomitant]
     Indication: IMMUNOSUPPRESSION
  12. CORTICOSTEROIDS [Concomitant]
     Indication: IMMUNOSUPPRESSION
  13. BUSULFAN [Concomitant]
     Indication: BONE MARROW CONDITIONING REGIMEN

REACTIONS (3)
  - ACUTE GRAFT VERSUS HOST DISEASE [None]
  - VANISHING BILE DUCT SYNDROME [None]
  - CHRONIC GRAFT VERSUS HOST DISEASE [None]
